FAERS Safety Report 14024838 (Version 1)
Quarter: 2017Q3

REPORT INFORMATION
  Report Type: Spontaneous
  Country: US (occurrence: US)
  Receive Date: 20170928
  Receipt Date: 20170928
  Transmission Date: 20171128
  Serious: No
  Sender: FDA-Public Use
  Company Number: US-SA-2017SA045124

PATIENT
  Age: 47 Year
  Sex: Female

DRUGS (1)
  1. AUBAGIO [Suspect]
     Active Substance: TERIFLUNOMIDE
     Route: 048

REACTIONS (5)
  - Fall [Unknown]
  - Tooth fracture [Unknown]
  - Pain [Unknown]
  - Food poisoning [Unknown]
  - Toothache [Unknown]

NARRATIVE: CASE EVENT DATE: 201703
